FAERS Safety Report 4774737-9 (Version None)
Quarter: 2005Q3

REPORT INFORMATION
  Report Type: 
  Country: None (occurrence: None)
  Receive Date: 20050921
  Receipt Date: 20050805
  Transmission Date: 20060218
  Serious: Yes (Other)
  Sender: FDA-Public Use
  Company Number: JP-GLAXOSMITHKLINE-B0390088A

PATIENT
  Age: 63 Year
  Sex: Female

DRUGS (3)
  1. PAXIL [Suspect]
     Indication: DEPRESSION
     Route: 048
     Dates: start: 20050511
  2. NORVASC [Concomitant]
     Dosage: 5MG PER DAY
     Route: 048
  3. SILECE [Concomitant]
     Dosage: 1TAB PER DAY
     Route: 048

REACTIONS (1)
  - PARKINSONISM [None]
